FAERS Safety Report 25229383 (Version 2)
Quarter: 2025Q2

REPORT INFORMATION
  Report Type: Report from Study
  Country: US (occurrence: US)
  Receive Date: 20250423
  Receipt Date: 20250424
  Transmission Date: 20250716
  Serious: No
  Sender: GILEAD
  Company Number: US-GILEAD-2025-0711275

PATIENT
  Age: 77 Year
  Sex: Male

DRUGS (1)
  1. SOFOSBUVIR\VELPATASVIR [Suspect]
     Active Substance: SOFOSBUVIR\VELPATASVIR
     Indication: Hepatitis C
     Dosage: TAKE 1 TABLET BY MOUTH ONCE DAILY FOR THE NEXT 12 WEEKS.
     Route: 048
     Dates: start: 20250312

REACTIONS (2)
  - Fatigue [Unknown]
  - Irritable bowel syndrome [Not Recovered/Not Resolved]
